FAERS Safety Report 25957567 (Version 1)
Quarter: 2025Q4

REPORT INFORMATION
  Report Type: Spontaneous
  Country: US (occurrence: None)
  Receive Date: 20251024
  Receipt Date: 20251024
  Transmission Date: 20260119
  Serious: Yes (Death)
  Sender: FDA-CTU
  Company Number: None

PATIENT
  Age: 81 Year
  Sex: Male

DRUGS (15)
  1. REPATHA [Suspect]
     Active Substance: EVOLOCUMAB
     Indication: Atrial fibrillation
     Dosage: 140MG EVERY OTHER WEEK SUBCUTANEOUS?
     Route: 058
     Dates: start: 20240903
  2. REPATHA [Suspect]
     Active Substance: EVOLOCUMAB
     Indication: Atrioventricular block
  3. TORSEMIDE [Concomitant]
     Active Substance: TORSEMIDE
  4. MIRABEGRON [Concomitant]
     Active Substance: MIRABEGRON
  5. XARELTO [Concomitant]
     Active Substance: RIVAROXABAN
  6. LOSARTAN [Concomitant]
     Active Substance: LOSARTAN
  7. CARVEDILOL [Concomitant]
     Active Substance: CARVEDILOL
  8. DULOXETINE [Concomitant]
     Active Substance: DULOXETINE
  9. SPIRONOLACTONE [Concomitant]
     Active Substance: SPIRONOLACTONE
  10. MODAFINIL [Concomitant]
     Active Substance: MODAFINIL
  11. OMEPRAZOLE [Concomitant]
     Active Substance: OMEPRAZOLE
  12. ZETIA [Concomitant]
     Active Substance: EZETIMIBE
  13. IRON [Concomitant]
     Active Substance: IRON
  14. VITAMIN B COMPLEX [Concomitant]
     Active Substance: CYANOCOBALAMIN\DEXPANTHENOL\NIACINAMIDE\PYRIDOXINE HYDROCHLORIDE\RIBOFLAVIN 5^-PHOSPHATE SODIUM\THIA
  15. COENZYME Q10 [Concomitant]
     Active Substance: DIETARY SUPPLEMENT\UBIDECARENONE

REACTIONS (1)
  - Death [None]

NARRATIVE: CASE EVENT DATE: 20251019
